FAERS Safety Report 16082375 (Version 1)
Quarter: 2019Q1

REPORT INFORMATION
  Report Type: Spontaneous
  Country: ES (occurrence: ES)
  Receive Date: 20190318
  Receipt Date: 20190318
  Transmission Date: 20190418
  Serious: Yes (Other)
  Sender: FDA-Public Use
  Company Number: ES-B.I. PHARMACEUTICALS,INC./RIDGEFIELD-2019-12-000827

PATIENT
  Age: 67 Year
  Sex: Male
  Weight: 77.5 kg

DRUGS (7)
  1. JARDIANCE [Suspect]
     Active Substance: EMPAGLIFLOZIN
     Indication: TYPE 2 DIABETES MELLITUS
     Dosage: 1 TABLET EVERY DAY
     Route: 048
     Dates: start: 20171222, end: 20180327
  2. REPAGLINIDA [Concomitant]
     Active Substance: REPAGLINIDE
     Indication: TYPE 2 DIABETES MELLITUS
     Dosage: 1.5 TABLETS 3 TIMES PER DAY, 1 MG / 90 COMPRIMIDOS
     Route: 048
     Dates: start: 20111028
  3. LYRICA [Concomitant]
     Active Substance: PREGABALIN
     Indication: NEUROPATHY PERIPHERAL
     Dosage: 1 CAPSULE EVERY 8 HOURS, 150MG 56 CAPSULAS DURAS
     Route: 048
     Dates: start: 20160317
  4. ENALAPRIL RATIOPHARM [Concomitant]
     Active Substance: ENALAPRIL
     Indication: HYPERTENSION
     Dosage: 1 TABLET EVERY DAY, 20MG 28 COMPRIMIDOS EFG
     Route: 048
     Dates: start: 20151028
  5. JARDIANCE [Suspect]
     Active Substance: EMPAGLIFLOZIN
     Dosage: 1 TABLET EVERY DAY
     Route: 048
     Dates: start: 20180327
  6. CYMBALTA [Concomitant]
     Active Substance: DULOXETINE HYDROCHLORIDE
     Indication: NEUROPATHY PERIPHERAL
     Dosage: 1 CAPSULE EVERY DAY, 30MG 28 CAPSULAS DURAS
     Route: 065
  7. METFORMIN [Concomitant]
     Active Substance: METFORMIN HYDROCHLORIDE
     Indication: PRODUCT USED FOR UNKNOWN INDICATION
     Dosage: 1 TABLET EVERY 12 HOURS, 50/1000MG 60 COMPRIMIDOS RECUB PELIC
     Route: 048
     Dates: start: 20151028

REACTIONS (1)
  - Infected skin ulcer [Not Recovered/Not Resolved]

NARRATIVE: CASE EVENT DATE: 20190116
